FAERS Safety Report 8506768-7 (Version None)
Quarter: 2012Q3

REPORT INFORMATION
  Report Type: 
  Country: None (occurrence: None)
  Receive Date: 20120712
  Receipt Date: 20120706
  Transmission Date: 20120928
  Serious: Yes (Hospitalization, Disabling)
  Sender: FDA-Public Use
  Company Number: FR-PFIZER INC-2012053252

PATIENT
  Age: 37 Year
  Sex: Male
  Weight: 104 kg

DRUGS (1)
  1. VARENICLINE TARTRATE [Suspect]
     Dosage: 1 MG, 2X/DAY
     Dates: start: 20100101

REACTIONS (2)
  - BIPOLAR I DISORDER [None]
  - DEPRESSION [None]
